FAERS Safety Report 4302347-6 (Version None)
Quarter: 2004Q1

REPORT INFORMATION
  Report Type: 
  Country: None (occurrence: None)
  Receive Date: 20040220
  Receipt Date: 20040212
  Transmission Date: 20041129
  Serious: Yes (Death)
  Sender: FDA-Public Use
  Company Number: USA-2004-0013157

PATIENT
  Age: 53 Year
  Sex: Female
  Weight: 68 kg

DRUGS (18)
  1. OXYCONTIN [Suspect]
     Indication: PAIN
     Dates: start: 20020408
  2. HYDROCODONE BITARTRATE [Suspect]
  3. OXYCODONE HCL [Suspect]
  4. CODEINE (CODEINE) [Suspect]
  5. DIPHENHYDRAMINE HCL [Suspect]
  6. ULTRAM [Suspect]
  7. SKELAXIN [Suspect]
  8. BUTALBITAL [Suspect]
  9. PAXIL [Suspect]
  10. BUSPAR [Concomitant]
  11. VIOXX (REFOCOXIB) [Concomitant]
  12. NEURONTIN [Concomitant]
  13. ACIPHEX [Concomitant]
  14. SOMA (CARSIPRODOL) [Concomitant]
  15. ALPRAZOLAM [Concomitant]
  16. SYNTHROID [Concomitant]
  17. IMITREX ^GLAXO^ (SUMATRIPTAN) [Concomitant]
  18. CHLORZOXAZONE (CHLORZOXAZONE) [Concomitant]

REACTIONS (4)
  - FEELING COLD [None]
  - RESPIRATORY ARREST [None]
  - SNORING [None]
  - TOXICOLOGIC TEST ABNORMAL [None]
